FAERS Safety Report 5352833-5 (Version None)
Quarter: 2007Q2

REPORT INFORMATION
  Report Type: 
  Country: None (occurrence: None)
  Receive Date: 20070611
  Receipt Date: 20070606
  Transmission Date: 20071010
  Serious: Yes (Other)
  Sender: FDA-Public Use
  Company Number: CA-ELI_LILLY_AND_COMPANY-CA200705006626

PATIENT
  Age: 19 Year
  Sex: Male

DRUGS (4)
  1. ZYPREXA ZYDIS [Suspect]
     Indication: DEPRESSION
     Dosage: 5 MG, EACH MORNING
     Route: 048
     Dates: start: 20060101
  2. ZYPREXA ZYDIS [Suspect]
     Dosage: 10 MG, EACH EVENING
     Route: 048
     Dates: start: 20060101
  3. RATIO-FLUOXETINE [Concomitant]
     Indication: DEPRESSION
     Dosage: 60 MG, EACH MORNING
     Route: 048
     Dates: start: 20060101
  4. CLONAZEPAM [Concomitant]
     Dosage: 0.5 MG, EACH EVENING
     Dates: start: 20051001, end: 20060301

REACTIONS (2)
  - COMPLEX PARTIAL SEIZURES [None]
  - HAEMANGIOMA [None]
